FAERS Safety Report 7283308-4 (Version None)
Quarter: 2011Q1

REPORT INFORMATION
  Report Type: 
  Country: None (occurrence: None)
  Receive Date: 20110209
  Receipt Date: 20101214
  Transmission Date: 20110831
  Serious: No
  Sender: FDA-Public Use
  Company Number: US-BAYER-2011-009167

PATIENT
  Sex: Female
  Weight: 77 kg

DRUGS (3)
  1. ALEVE (CAPLET) [Suspect]
     Indication: ANALGESIC THERAPY
     Dosage: DAILY DOSE 2 DF
     Route: 048
  2. LISINOPRIL [Concomitant]
  3. ATENOLOL [Concomitant]

REACTIONS (1)
  - URTICARIA [None]
